FAERS Safety Report 9419160 (Version 1)
Quarter: 2013Q3

REPORT INFORMATION
  Report Type: Spontaneous
  Country: FR (occurrence: FR)
  Receive Date: 20130725
  Receipt Date: 20130725
  Transmission Date: 20140515
  Serious: Yes (Life-Threatening, Hospitalization, Other)
  Sender: FDA-Public Use
  Company Number: FR-ELI_LILLY_AND_COMPANY-FR201307005312

PATIENT
  Age: 48 Year
  Sex: Male

DRUGS (5)
  1. PROZAC [Suspect]
     Dosage: 1 DF, UNKNOWN
     Route: 048
     Dates: start: 201204, end: 20120821
  2. BACLOFEN [Concomitant]
     Indication: ALCOHOLISM
     Dosage: 30 MG, QD
     Route: 048
     Dates: start: 201204
  3. BACLOFEN [Concomitant]
     Dosage: 120 MG, QD
     Route: 048
     Dates: end: 20120821
  4. LAROXYL [Concomitant]
     Dosage: 40 MG, QD
     Route: 048
     Dates: start: 201204, end: 20120821
  5. VALIUM [Concomitant]
     Dosage: UNK
     Route: 048
     Dates: start: 201204, end: 20120821

REACTIONS (3)
  - Coma [Recovered/Resolved]
  - Blood potassium increased [Unknown]
  - Weight decreased [Unknown]
